FAERS Safety Report 9691142 (Version 1)
Quarter: 2013Q4

REPORT INFORMATION
  Report Type: Report from Study
  Country: ZA (occurrence: ZA)
  Receive Date: 20131115
  Receipt Date: 20131115
  Transmission Date: 20140711
  Serious: Yes (Other)
  Sender: FDA-Public Use
  Company Number: ZA-ABBVIE-13P-143-1168635-00

PATIENT
  Age: 38 Year
  Sex: Female

DRUGS (3)
  1. KALETRA [Suspect]
     Indication: ANTIRETROVIRAL THERAPY
     Dosage: 1 COURSE, TAKING AT CONCEPTION
     Route: 048
     Dates: start: 20120223
  2. INTELENCE [Suspect]
     Indication: ANTIRETROVIRAL THERAPY
     Dosage: 1 COURSE, TAKING AT CONCEPTION
     Route: 048
     Dates: start: 20120223, end: 20130918
  3. STAVUDINE [Suspect]
     Indication: ANTIRETROVIRAL THERAPY
     Dosage: 1 COURSE, TAKING AT CONCEPTION
     Route: 048
     Dates: start: 20120223

REACTIONS (2)
  - Abortion spontaneous [Unknown]
  - Placenta praevia [Unknown]
